FAERS Safety Report 9193241 (Version 1)
Quarter: 2013Q1

REPORT INFORMATION
  Report Type: Spontaneous
  Country: US (occurrence: None)
  Receive Date: 20130326
  Receipt Date: 20130326
  Transmission Date: 20140127
  Serious: Yes (Other)
  Sender: FDA-Public Use
  Company Number: None

PATIENT
  Age: 37 Year
  Sex: Female
  Weight: 59.88 kg

DRUGS (1)
  1. NUVARING [Suspect]
     Indication: ENDOMETRIOSIS
     Dosage: ONE RING  ONCE PER MONTH VAG
     Route: 067
     Dates: start: 20070101, end: 20071001

REACTIONS (6)
  - Depression [None]
  - Anxiety [None]
  - Suicidal ideation [None]
  - Thinking abnormal [None]
  - Fear [None]
  - Partner stress [None]
